FAERS Safety Report 9006955 (Version 1)
Quarter: 2013Q1

REPORT INFORMATION
  Report Type: Spontaneous
  Country: FR (occurrence: FR)
  Receive Date: 20130110
  Receipt Date: 20130110
  Transmission Date: 20140127
  Serious: Yes (Hospitalization, Other)
  Sender: FDA-Public Use
  Company Number: FR-ABBOTT-12P-056-1016724-00

PATIENT
  Age: 84 Year
  Sex: Male

DRUGS (7)
  1. ENANTONE [Suspect]
     Indication: PROSTATE CANCER
     Route: 030
     Dates: start: 20050124
  2. KARDEGIC [Concomitant]
     Indication: PRODUCT USED FOR UNKNOWN INDICATION
  3. ALTEIS [Concomitant]
     Indication: PRODUCT USED FOR UNKNOWN INDICATION
     Route: 048
  4. LASILIX [Concomitant]
     Indication: PRODUCT USED FOR UNKNOWN INDICATION
     Route: 048
  5. EUPRESSYL [Concomitant]
     Indication: PRODUCT USED FOR UNKNOWN INDICATION
  6. ISOPTINE [Concomitant]
     Indication: PRODUCT USED FOR UNKNOWN INDICATION
     Route: 048
  7. LEVOTHYROX [Concomitant]
     Indication: HYPOTHYROIDISM
     Route: 048

REACTIONS (2)
  - Infection [Recovered/Resolved]
  - Injection site abscess [Recovered/Resolved]
